FAERS Safety Report 7609730-1 (Version None)
Quarter: 2011Q3

REPORT INFORMATION
  Report Type: 
  Country: None (occurrence: None)
  Receive Date: 20110714
  Receipt Date: 20110712
  Transmission Date: 20111222
  Serious: Yes (Death)
  Sender: FDA-Public Use
  Company Number: US-ACTELION-A-NJ2011-50901

PATIENT

DRUGS (2)
  1. VENTAVIS [Suspect]
     Indication: PULMONARY ARTERIAL HYPERTENSION
     Dosage: UNK
     Route: 055
     Dates: start: 20091206, end: 20110619
  2. ADCIRCA [Concomitant]

REACTIONS (1)
  - RESPIRATORY FAILURE [None]
